FAERS Safety Report 4744176-5 (Version None)
Quarter: 2005Q3

REPORT INFORMATION
  Report Type: 
  Country: None (occurrence: None)
  Receive Date: 20050810
  Receipt Date: 20050810
  Transmission Date: 20060218
  Serious: Yes (Death, Life-Threatening, Hospitalization, Disabling)
  Sender: FDA-Public Use
  Company Number: None

PATIENT
  Age: 80 Year
  Sex: Female
  Weight: 81.6475 kg

DRUGS (1)
  1. COUMADIN [Suspect]
     Indication: CARDIAC FAILURE CONGESTIVE
     Dosage: CHANGED FREQUENTLY WEEKLY

REACTIONS (4)
  - IMPAIRED HEALING [None]
  - INCISION SITE HAEMORRHAGE [None]
  - NECROSIS [None]
  - POST PROCEDURAL COMPLICATION [None]
